FAERS Safety Report 6426148-8 (Version None)
Quarter: 2009Q4

REPORT INFORMATION
  Report Type: 
  Country: None (occurrence: None)
  Receive Date: 20091103
  Receipt Date: 20091103
  Transmission Date: 20100525
  Serious: No
  Sender: FDA-Public Use
  Company Number: None

PATIENT
  Age: 58 Year
  Sex: Male

DRUGS (1)
  1. LORAZEPAM [Suspect]
     Indication: AGITATION
     Dosage: 2 MG ONCE IV
     Route: 042
     Dates: start: 20090402, end: 20090402

REACTIONS (1)
  - UNRESPONSIVE TO STIMULI [None]
